FAERS Safety Report 8119297-X (Version None)
Quarter: 2012Q1

REPORT INFORMATION
  Report Type: 
  Country: None (occurrence: None)
  Receive Date: 20120207
  Receipt Date: 20120126
  Transmission Date: 20120608
  Serious: Yes (Hospitalization)
  Sender: FDA-Public Use
  Company Number: DK-ELI_LILLY_AND_COMPANY-DK201109008642

PATIENT
  Sex: Male
  Weight: 70 kg

DRUGS (3)
  1. OLANZAPINE [Suspect]
     Indication: SCHIZOPHRENIA
     Dosage: 300 MG, UNK
     Route: 030
     Dates: start: 20110812, end: 20110812
  2. BRICANYL [Concomitant]
     Indication: ASTHMA
     Dosage: 0.5 MG, PRN
  3. SYMBICORT [Concomitant]
     Indication: ASTHMA
     Dosage: 1 SUCK, BID
     Route: 055

REACTIONS (5)
  - COMA [None]
  - BRONCHOSPASM [None]
  - PNEUMONIA [None]
  - CHRONIC RESPIRATORY FAILURE [None]
  - POST PROCEDURAL COMPLICATION [None]
